FAERS Safety Report 8325346-6 (Version None)
Quarter: 2012Q2

REPORT INFORMATION
  Report Type: 
  Country: None (occurrence: None)
  Receive Date: 20120427
  Receipt Date: 20120423
  Transmission Date: 20120825
  Serious: Yes (Hospitalization, Disabling)
  Sender: FDA-Public Use
  Company Number: 2011SP037378

PATIENT
  Age: 39 Year
  Sex: Female
  Weight: 132.0875 kg

DRUGS (2)
  1. NUVARING [Suspect]
     Indication: MENSTRUAL CYCLE MANAGEMENT
     Dates: start: 20090401, end: 20090801
  2. MOBIC [Concomitant]

REACTIONS (15)
  - ELECTROCARDIOGRAM ST-T CHANGE [None]
  - HYPERHIDROSIS [None]
  - INFLUENZA [None]
  - JOINT EFFUSION [None]
  - PULMONARY EMBOLISM [None]
  - DIZZINESS [None]
  - PULMONARY OEDEMA [None]
  - BRONCHITIS [None]
  - PARAESTHESIA [None]
  - DYSLIPIDAEMIA [None]
  - THROMBOSIS [None]
  - UTERINE LEIOMYOMA [None]
  - ADENOMYOSIS [None]
  - PAIN IN EXTREMITY [None]
  - MUSCLE STRAIN [None]
